FAERS Safety Report 7767254-5 (Version None)
Quarter: 2011Q3

REPORT INFORMATION
  Report Type: 
  Country: None (occurrence: None)
  Receive Date: 20110922
  Receipt Date: 20100812
  Transmission Date: 20111222
  Serious: No
  Sender: FDA-Public Use
  Company Number: US-ASTRAZENECA-2010SE37898

PATIENT
  Age: 26 Year
  Sex: Male

DRUGS (4)
  1. DIAZEPAM [Concomitant]
  2. SUBOXONE [Concomitant]
     Indication: THERAPY CESSATION
  3. SEROQUEL XR [Suspect]
     Indication: DEPRESSION
     Route: 048
  4. REMERON [Concomitant]

REACTIONS (2)
  - PERSONALITY DISORDER [None]
  - MYALGIA [None]
